FAERS Safety Report 14803313 (Version 1)
Quarter: 2018Q2

REPORT INFORMATION
  Report Type: Spontaneous
  Country: US (occurrence: US)
  Receive Date: 20180425
  Receipt Date: 20180425
  Transmission Date: 20180711
  Serious: No
  Sender: FDA-Public Use
  Company Number: US-GLENMARK PHARMACEUTICALS-2018GMK033426

PATIENT

DRUGS (1)
  1. IMIQUIMOD. [Suspect]
     Active Substance: IMIQUIMOD
     Indication: ACTINIC KERATOSIS
     Dosage: UNK UNK, HS (ONCE A DAY AT BEDTIME)
     Route: 061

REACTIONS (3)
  - Wrong technique in product usage process [Unknown]
  - Application site erythema [Recovering/Resolving]
  - Application site hypersensitivity [Recovering/Resolving]
